FAERS Safety Report 10200285 (Version 1)
Quarter: 2014Q2

REPORT INFORMATION
  Report Type: Spontaneous
  Country: US (occurrence: US)
  Receive Date: 20140527
  Receipt Date: 20140527
  Transmission Date: 20141212
  Serious: Yes (Hospitalization, Other)
  Sender: FDA-Public Use
  Company Number: US-ASTRAZENECA-2014SE34667

PATIENT
  Age: 71 Year
  Sex: Female
  Weight: 68 kg

DRUGS (4)
  1. CRESTOR [Suspect]
     Indication: BLOOD CHOLESTEROL INCREASED
     Route: 048
     Dates: start: 2005, end: 201405
  2. XARELTO [Concomitant]
     Indication: ANTICOAGULANT THERAPY
     Route: 048
     Dates: start: 201301
  3. XARELTO [Concomitant]
     Indication: CARDIAC PACEMAKER INSERTION
     Route: 048
     Dates: start: 201301
  4. METAMAZOLE [Concomitant]
     Indication: THYROID DISORDER

REACTIONS (6)
  - Heart rate decreased [Unknown]
  - Movement disorder [Unknown]
  - Arthralgia [Unknown]
  - Myalgia [Unknown]
  - Blood glucose increased [Unknown]
  - Asthenia [Unknown]
